FAERS Safety Report 4935655-6 (Version None)
Quarter: 2006Q1

REPORT INFORMATION
  Report Type: 
  Country: None (occurrence: None)
  Receive Date: 20060307
  Receipt Date: 20051012
  Transmission Date: 20060701
  Serious: No
  Sender: FDA-Public Use
  Company Number: US-GLAXOSMITHKLINE-A0578028A

PATIENT
  Age: 55 Year
  Sex: Female

DRUGS (8)
  1. REQUIP [Suspect]
     Indication: RESTLESS LEGS SYNDROME
     Dosage: .25MG PER DAY
     Route: 048
     Dates: start: 20050908
  2. ATENOLOL [Concomitant]
     Indication: MIGRAINE
     Dosage: 25MG THREE TIMES PER DAY
     Route: 048
     Dates: start: 20050719
  3. HYDROMORPHONE HCL [Concomitant]
     Indication: MIGRAINE
     Route: 048
     Dates: start: 20041217
  4. ESTRADIOL [Concomitant]
     Indication: MIGRAINE
     Dosage: 1MG PER DAY
     Route: 048
     Dates: start: 20051005
  5. LUNESTA [Concomitant]
     Indication: INSOMNIA
     Dosage: 3MG AT NIGHT
     Route: 048
     Dates: start: 20051005
  6. DEPAKOTE [Concomitant]
     Indication: MIGRAINE
     Dosage: 125MG THREE TIMES PER DAY
     Route: 048
     Dates: start: 20050915
  7. RELPAX [Concomitant]
     Indication: MIGRAINE
     Route: 048
     Dates: start: 20040614
  8. LEXAPRO [Concomitant]
     Indication: DEPRESSION
     Dosage: 20MG PER DAY
     Route: 048
     Dates: start: 20040713

REACTIONS (2)
  - DRUG INTERACTION [None]
  - PAIN IN EXTREMITY [None]
